FAERS Safety Report 7249972-0 (Version None)
Quarter: 2011Q1

REPORT INFORMATION
  Report Type: 
  Country: None (occurrence: None)
  Receive Date: 20110128
  Receipt Date: 20101209
  Transmission Date: 20110831
  Serious: No
  Sender: FDA-Public Use
  Company Number: A0894315A

PATIENT
  Sex: Male

DRUGS (2)
  1. WELLBUTRIN [Suspect]
     Indication: MAJOR DEPRESSION
     Route: 065
  2. BUPROPION HCL [Suspect]
     Indication: MAJOR DEPRESSION
     Route: 065

REACTIONS (2)
  - DEPRESSION [None]
  - DRUG INEFFECTIVE [None]
